FAERS Safety Report 8254981-9 (Version None)
Quarter: 2012Q1

REPORT INFORMATION
  Report Type: 
  Country: None (occurrence: None)
  Receive Date: 20120329
  Receipt Date: 20120316
  Transmission Date: 20120608
  Serious: Yes (Hospitalization)
  Sender: FDA-Public Use
  Company Number: 2012S1000021

PATIENT
  Age: 51 Year
  Sex: Male
  Weight: 152.4086 kg

DRUGS (20)
  1. SODIUM CHLORIDE [Concomitant]
  2. LISINOPRIL [Concomitant]
  3. LASIX [Concomitant]
  4. SLEEP AID [Concomitant]
  5. KRYSTEXXA [Suspect]
     Indication: GOUT
     Dosage: 8 MG; QOW; IV
     Route: 042
     Dates: start: 20111212, end: 20120319
  6. XANAX [Concomitant]
  7. TIZANIDINE HCL [Concomitant]
  8. BENADRYL [Concomitant]
  9. FLONASE [Concomitant]
  10. DEXILANT [Concomitant]
  11. LORTAB [Concomitant]
  12. SENNA [Concomitant]
  13. METOPROLOL SUCCINATE [Concomitant]
  14. POTASSIUM [Concomitant]
  15. PREDNISONE TAB [Concomitant]
  16. MORPHINE [Concomitant]
  17. LORATADINE [Concomitant]
  18. ASPIRIN [Concomitant]
  19. RANITIDINE [Concomitant]
  20. VITAMIN D [Concomitant]

REACTIONS (17)
  - ANGIOEDEMA [None]
  - DYSPNOEA [None]
  - ARTHRALGIA [None]
  - CHEST PAIN [None]
  - INFLAMMATION [None]
  - DYSPHONIA [None]
  - VOMITING [None]
  - COLD SWEAT [None]
  - OEDEMA PERIPHERAL [None]
  - GOUT [None]
  - NAUSEA [None]
  - ASCITES [None]
  - THROMBOSIS [None]
  - CYANOSIS [None]
  - CONSTIPATION [None]
  - CHEST DISCOMFORT [None]
  - PHARYNGITIS [None]
